FAERS Safety Report 15218838 (Version 1)
Quarter: 2018Q3

REPORT INFORMATION
  Report Type: Spontaneous
  Country: DE (occurrence: DE)
  Receive Date: 20180731
  Receipt Date: 20180731
  Transmission Date: 20181010
  Serious: Yes (Other)
  Sender: FDA-Public Use
  Company Number: DE-SUN PHARMACEUTICAL INDUSTRIES LTD-2018RR-179858

PATIENT
  Age: 34 Year
  Sex: Female
  Weight: 68 kg

DRUGS (1)
  1. CIPROFLOXACIN. [Suspect]
     Active Substance: CIPROFLOXACIN
     Indication: UTERINE INFECTION
     Dosage: 6 TAGE 2 TABLETTEN ZU JE 500MG
     Route: 048
     Dates: start: 20180604, end: 20180610

REACTIONS (14)
  - Musculoskeletal discomfort [Unknown]
  - Gait disturbance [Unknown]
  - Immune system disorder [Unknown]
  - Diplopia [Unknown]
  - Angiopathy [Unknown]
  - Sleep disorder [Unknown]
  - Syncope [Unknown]
  - Tinnitus [Unknown]
  - Gastrointestinal disorder [Unknown]
  - Dizziness [Unknown]
  - Nausea [Unknown]
  - Tremor [Unknown]
  - Vomiting [Unknown]
  - Headache [Unknown]

NARRATIVE: CASE EVENT DATE: 20180610
